FAERS Safety Report 6191629-1 (Version None)
Quarter: 2009Q2

REPORT INFORMATION
  Report Type: 
  Country: None (occurrence: None)
  Receive Date: 20090515
  Receipt Date: 20090504
  Transmission Date: 20091009
  Serious: Yes (Death, Other)
  Sender: FDA-Public Use
  Company Number: US-PFIZER INC-2009173196

PATIENT
  Sex: Female

DRUGS (6)
  1. XANAX [Suspect]
     Indication: ANXIETY
     Dosage: 1 MG, UNK
     Dates: end: 20090101
  2. OXYMORPHONE HYDROCHLORIDE [Suspect]
     Indication: BACK PAIN
     Dosage: 10 MG, 2X/DAY
     Route: 048
     Dates: start: 20070619, end: 20090113
  3. PROMETHAZINE [Concomitant]
     Dosage: 25 MG, AS NEEDED
     Route: 048
  4. ZOLPIDEM [Concomitant]
     Indication: INSOMNIA
     Dosage: 10 MG, 1X/DAY
  5. TOPAMAX [Concomitant]
     Indication: INTERCOSTAL NEURALGIA
     Dosage: 100 MG, 2X/DAY
  6. TOPAMAX [Concomitant]
     Indication: TRIGEMINAL NEURALGIA

REACTIONS (3)
  - CARDIAC ARREST [None]
  - LOSS OF CONSCIOUSNESS [None]
  - OVERDOSE [None]
